FAERS Safety Report 11352246 (Version 1)
Quarter: 2015Q3

REPORT INFORMATION
  Report Type: Spontaneous
  Country: US (occurrence: US)
  Receive Date: 20150807
  Receipt Date: 20150807
  Transmission Date: 20151125
  Serious: No
  Sender: FDA-Public Use
  Company Number: US-JNJFOC-20150216861

PATIENT
  Age: 32 Year
  Sex: Male
  Weight: 72.58 kg

DRUGS (7)
  1. MENS ROGAINE EXTRA STRENGTH [Suspect]
     Active Substance: MINOXIDIL
     Indication: HAIR GROWTH ABNORMAL
     Dosage: 1/2 A CAPFUL
     Route: 061
     Dates: start: 201501, end: 20150218
  2. MSM [Concomitant]
     Active Substance: DIMETHYL SULFONE
     Indication: ALOPECIA
     Dosage: ONE YEAR
     Route: 065
  3. AVODART [Concomitant]
     Active Substance: DUTASTERIDE
     Indication: ALOPECIA
     Dosage: 5-6 MTHS
     Route: 065
  4. OMEGA-3 ACIDS [Concomitant]
     Active Substance: OMEGA-3 FATTY ACIDS
     Indication: ALOPECIA
     Route: 065
  5. MENS ROGAINE EXTRA STRENGTH [Suspect]
     Active Substance: MINOXIDIL
     Route: 061
  6. VITAMIN D [Concomitant]
     Active Substance: CHOLECALCIFEROL
     Indication: ALOPECIA
     Dosage: ONE YEAR
     Route: 065
  7. BIOTIN [Concomitant]
     Active Substance: BIOTIN
     Indication: ALOPECIA
     Dosage: YEARS
     Route: 065

REACTIONS (4)
  - Pruritus [Recovered/Resolved]
  - Rash pruritic [Not Recovered/Not Resolved]
  - Rash [Not Recovered/Not Resolved]
  - Mass [Not Recovered/Not Resolved]
